FAERS Safety Report 12215247 (Version 5)
Quarter: 2017Q1

REPORT INFORMATION
  Report Type: Report from Study
  Country: US (occurrence: US)
  Receive Date: 20160328
  Receipt Date: 20170211
  Transmission Date: 20170428
  Serious: Yes (Death, Hospitalization)
  Sender: FDA-Public Use
  Company Number: US-B.I. PHARMACEUTICALS,INC./RIDGEFIELD-2015-BI-63358BP

PATIENT
  Sex: Male
  Weight: 87.1 kg

DRUGS (6)
  1. OFEV [Suspect]
     Active Substance: NINTEDANIB
     Route: 048
     Dates: start: 201511, end: 201701
  2. OXYGEN. [Concomitant]
     Active Substance: OXYGEN
     Indication: PRODUCT USED FOR UNKNOWN INDICATION
     Route: 065
  3. OFEV [Suspect]
     Active Substance: NINTEDANIB
     Route: 048
     Dates: start: 20151110
  4. OFEV [Suspect]
     Active Substance: NINTEDANIB
     Indication: IDIOPATHIC PULMONARY FIBROSIS
     Route: 048
     Dates: start: 20151106
  5. WARFARIN [Concomitant]
     Active Substance: WARFARIN
     Indication: PRODUCT USED FOR UNKNOWN INDICATION
     Route: 065
  6. OMEPRAZOLE. [Concomitant]
     Active Substance: OMEPRAZOLE
     Indication: PRODUCT USED FOR UNKNOWN INDICATION
     Route: 065

REACTIONS (25)
  - Dysgeusia [Unknown]
  - Rales [Unknown]
  - Productive cough [Recovered/Resolved]
  - Diarrhoea [Unknown]
  - Oesophageal perforation [Fatal]
  - Decreased appetite [Unknown]
  - Productive cough [Unknown]
  - Abdominal discomfort [Unknown]
  - Arthritis [Recovered/Resolved]
  - Epistaxis [Unknown]
  - Diarrhoea [Recovered/Resolved]
  - Dry throat [Not Recovered/Not Resolved]
  - Flatulence [Recovered/Resolved]
  - Dyspnoea [Recovered/Resolved]
  - Gastrooesophageal reflux disease [Unknown]
  - Headache [Recovered/Resolved]
  - Nausea [Unknown]
  - Dyspnoea [Unknown]
  - Cough [Unknown]
  - Epistaxis [Not Recovered/Not Resolved]
  - Dyspnoea exertional [Unknown]
  - Flatulence [Unknown]
  - Intestinal obstruction [Unknown]
  - Hypogeusia [Not Recovered/Not Resolved]
  - Dry mouth [Not Recovered/Not Resolved]
